FAERS Safety Report 25212688 (Version 1)
Quarter: 2025Q2

REPORT INFORMATION
  Report Type: Spontaneous
  Country: CN (occurrence: CN)
  Receive Date: 20250418
  Receipt Date: 20250418
  Transmission Date: 20250717
  Serious: Yes (Life-Threatening, Other)
  Sender: SANOFI AVENTIS
  Company Number: CN-SA-2025SA110185

PATIENT
  Age: 61 Year
  Sex: Male
  Weight: 70 kg

DRUGS (8)
  1. PLAVIX [Suspect]
     Active Substance: CLOPIDOGREL BISULFATE
     Indication: Acute myocardial infarction
     Dosage: 75 MG, QD
     Route: 048
     Dates: start: 20250405, end: 20250407
  2. ENOXAPARIN SODIUM [Suspect]
     Active Substance: ENOXAPARIN SODIUM
     Indication: Acute myocardial infarction
     Dosage: 4000 IU, Q12H
     Route: 058
     Dates: start: 20250405, end: 20250407
  3. ASPIRIN [Suspect]
     Active Substance: ASPIRIN
     Indication: Acute myocardial infarction
     Dosage: 100 MG, QD
     Route: 048
     Dates: start: 20250405, end: 20250407
  4. HERBALS [Suspect]
     Active Substance: HERBALS
     Indication: Acute myocardial infarction
     Dosage: 20 ML, QD
     Route: 041
     Dates: start: 20250406, end: 20250407
  5. SODIUM TANSHINONE IIA SULFONATE [Suspect]
     Active Substance: SODIUM TANSHINONE IIA SULFONATE
     Indication: Acute myocardial infarction
     Dosage: 60 MG, QD
     Route: 041
     Dates: start: 20250405, end: 20250407
  6. TIROFIBAN HYDROCHLORIDE [Suspect]
     Active Substance: TIROFIBAN HYDROCHLORIDE
     Indication: Acute myocardial infarction
     Route: 041
     Dates: start: 20250405, end: 20250405
  7. SODIUM CHLORIDE [Concomitant]
     Active Substance: SODIUM CHLORIDE
     Indication: Vehicle solution use
     Dosage: 250 ML, QD
     Route: 041
     Dates: start: 20250405, end: 20250407
  8. DEXTROSE [Concomitant]
     Active Substance: DEXTROSE MONOHYDRATE
     Indication: Vehicle solution use
     Dosage: 250 ML, QD
     Route: 041
     Dates: start: 20250405, end: 20250407

REACTIONS (8)
  - Coma [Unknown]
  - Apnoea [Unknown]
  - Aortic valve incompetence [Unknown]
  - Cerebral haemorrhage [Unknown]
  - Hyperhidrosis [Unknown]
  - Vomiting [Unknown]
  - Nausea [Unknown]
  - Headache [Unknown]

NARRATIVE: CASE EVENT DATE: 20250407
